FAERS Safety Report 12599739 (Version 1)
Quarter: 2016Q3

REPORT INFORMATION
  Report Type: Spontaneous
  Country: DK (occurrence: DK)
  Receive Date: 20160727
  Receipt Date: 20160727
  Transmission Date: 20161109
  Serious: Yes (Hospitalization)
  Sender: FDA-Public Use
  Company Number: PHHY2016DK099902

PATIENT
  Sex: Female
  Weight: 62 kg

DRUGS (1)
  1. THYCAPZOL [Suspect]
     Active Substance: METHIMAZOLE
     Indication: HYPERTHYROIDISM
     Dosage: 5 MG, QD
     Route: 048
     Dates: start: 20140522, end: 20141218

REACTIONS (15)
  - Faeces discoloured [Recovered/Resolved]
  - Sensory disturbance [Unknown]
  - Inferior vena cava dilatation [Not Recovered/Not Resolved]
  - Musculoskeletal pain [Unknown]
  - Abdominal pain [Unknown]
  - Thrombosis [Unknown]
  - Weight decreased [Unknown]
  - Impaired work ability [Not Recovered/Not Resolved]
  - Facial paresis [Unknown]
  - Intestinal ischaemia [Not Recovered/Not Resolved]
  - Feeling abnormal [Unknown]
  - Discomfort [Not Recovered/Not Resolved]
  - Mouth injury [Unknown]
  - Activities of daily living impaired [Not Recovered/Not Resolved]
  - Dyspepsia [Unknown]

NARRATIVE: CASE EVENT DATE: 2014
